FAERS Safety Report 15464671 (Version 1)
Quarter: 2018Q4

REPORT INFORMATION
  Report Type: Spontaneous
  Country: DE (occurrence: DE)
  Receive Date: 20181004
  Receipt Date: 20181004
  Transmission Date: 20190204
  Serious: Yes (Hospitalization, Other)
  Sender: FDA-Public Use
  Company Number: PHHY2016DE138138

PATIENT

DRUGS (3)
  1. DEXAMETHASONE. [Suspect]
     Active Substance: DEXAMETHASONE
     Indication: FACIAL PARALYSIS
     Dosage: 8 MG, QD
     Route: 065
     Dates: start: 2014
  2. MANNITOL. [Suspect]
     Active Substance: MANNITOL
     Indication: PRODUCT USED FOR UNKNOWN INDICATION
     Route: 065
     Dates: start: 2014
  3. DEXAMETHASONE. [Suspect]
     Active Substance: DEXAMETHASONE
     Indication: DIPLOPIA
     Dosage: 1.5 MG, QD
     Route: 065
     Dates: start: 2014

REACTIONS (6)
  - Somnolence [Unknown]
  - Drug effect incomplete [Unknown]
  - Ataxia [Recovering/Resolving]
  - Cytomegalovirus infection [Recovered/Resolved]
  - Disorientation [Recovered/Resolved]
  - Drug ineffective [Unknown]

NARRATIVE: CASE EVENT DATE: 2014
